FAERS Safety Report 21866849 (Version 1)
Quarter: 2023Q1

REPORT INFORMATION
  Report Type: Spontaneous
  Country: RU (occurrence: RU)
  Receive Date: 20230116
  Receipt Date: 20230116
  Transmission Date: 20230417
  Serious: Yes (Other)
  Sender: FDA-Public Use
  Company Number: RU-PFIZER INC-PV202300007195

PATIENT
  Age: 16 Year
  Sex: Female
  Weight: 42.5 kg

DRUGS (8)
  1. LINEZOLID [Suspect]
     Active Substance: LINEZOLID
     Indication: Tuberculosis
     Dosage: 0.6
     Dates: start: 20220329
  2. PIRAZINAMID [Concomitant]
     Indication: Tuberculosis
     Dosage: 1.5
     Dates: start: 20220329, end: 20230110
  3. CAPREOMYCIN [Concomitant]
     Active Substance: CAPREOMYCIN
     Indication: Tuberculosis
     Dosage: 0.75
     Dates: start: 20220829, end: 20221004
  4. PASK SODIUM SALT [Concomitant]
     Indication: Tuberculosis
     Dosage: 9
     Dates: start: 20220329, end: 20220421
  5. BEDAQUILINE [Concomitant]
     Active Substance: BEDAQUILINE
     Indication: Tuberculosis
     Dosage: 400
     Dates: start: 20220414, end: 20220428
  6. BEDAQUILINE [Concomitant]
     Active Substance: BEDAQUILINE
     Dosage: 200
     Dates: start: 20220429, end: 20220621
  7. PROTIONAMIDE [Concomitant]
     Active Substance: PROTIONAMIDE
     Indication: Tuberculosis
     Dosage: 0.75
     Dates: start: 20220422, end: 20220621
  8. DELAMANID [Concomitant]
     Active Substance: DELAMANID
     Indication: Tuberculosis
     Dosage: 200
     Dates: start: 20220610, end: 20230110

REACTIONS (7)
  - Hypersensitivity [Unknown]
  - Eosinophilia [Unknown]
  - Haematotoxicity [Unknown]
  - Red blood cell sedimentation rate increased [Unknown]
  - Vomiting [Unknown]
  - Nausea [Unknown]
  - Off label use [Unknown]

NARRATIVE: CASE EVENT DATE: 20220329
